FAERS Safety Report 9890625 (Version 2)
Quarter: 2014Q2

REPORT INFORMATION
  Report Type: Spontaneous
  Country: DE (occurrence: DE)
  Receive Date: 20140212
  Receipt Date: 20140405
  Transmission Date: 20141212
  Serious: Yes (Hospitalization)
  Sender: FDA-Public Use
  Company Number: DE-ROCHE-1347158

PATIENT
  Age: 68 Year
  Sex: Female

DRUGS (4)
  1. MABTHERA [Suspect]
     Indication: RHEUMATOID ARTHRITIS
     Dosage: TWO DOSAGES OF 1 G EACH WERE GIVEN
     Route: 042
     Dates: start: 20130405, end: 20130424
  2. METHOTREXAT [Concomitant]
     Indication: RHEUMATOID ARTHRITIS
     Route: 058
     Dates: end: 20130528
  3. PREDNISOLON [Concomitant]
     Indication: RHEUMATOID ARTHRITIS
     Route: 048
  4. CYCLOPHOSPHAMID [Concomitant]
     Indication: CORNEAL DYSTROPHY
     Route: 042

REACTIONS (3)
  - Immunodeficiency [Not Recovered/Not Resolved]
  - Pneumocystis jirovecii pneumonia [Recovered/Resolved with Sequelae]
  - Acute respiratory distress syndrome [Recovered/Resolved]
